FAERS Safety Report 4440845-5 (Version None)
Quarter: 2004Q3

REPORT INFORMATION
  Report Type: 
  Country: None (occurrence: None)
  Receive Date: 20040903
  Receipt Date: 20040826
  Transmission Date: 20050211
  Serious: Yes (Hospitalization, Other)
  Sender: FDA-Public Use
  Company Number: NL-GLAXOSMITHKLINE-B0343771A

PATIENT
  Age: 72 Year
  Sex: Male

DRUGS (5)
  1. FLUTICASONE PROPIONATE [Suspect]
     Dates: start: 20030801
  2. SOTALOL HYDROCHLORIDE [Concomitant]
     Route: 048
  3. LANOXIN [Concomitant]
  4. ASPIRIN [Concomitant]
  5. BACTROBAN [Concomitant]

REACTIONS (2)
  - CHEST DISCOMFORT [None]
  - LOSS OF CONSCIOUSNESS [None]
